FAERS Safety Report 20584457 (Version 1)
Quarter: 2022Q1

REPORT INFORMATION
  Report Type: Spontaneous
  Country: US (occurrence: US)
  Receive Date: 20220311
  Receipt Date: 20220311
  Transmission Date: 20220423
  Serious: Yes (Hospitalization, Other)
  Sender: FDA-Public Use
  Company Number: US-INTRA-CELLULAR THERAPIES, INC.-2022ICT00163

PATIENT
  Sex: Male

DRUGS (2)
  1. CAPLYTA [Suspect]
     Active Substance: LUMATEPERONE
     Indication: Schizophrenia
     Dosage: 42 MG, 1X/DAY IN THE MORNING
     Route: 048
     Dates: start: 202006, end: 20211231
  2. RISPERIDONE [Suspect]
     Active Substance: RISPERIDONE
     Indication: Schizophrenia
     Dosage: UNK
     Dates: start: 202112

REACTIONS (7)
  - Suicidal behaviour [Unknown]
  - Blood pressure increased [Unknown]
  - Paranoia [Not Recovered/Not Resolved]
  - Therapeutic response unexpected [Unknown]
  - Feelings of worthlessness [Unknown]
  - Aggression [Unknown]
  - Akathisia [Unknown]

NARRATIVE: CASE EVENT DATE: 20220201
